FAERS Safety Report 16066888 (Version 1)
Quarter: 2019Q1

REPORT INFORMATION
  Report Type: Spontaneous
  Country: FR (occurrence: FR)
  Receive Date: 20190313
  Receipt Date: 20190313
  Transmission Date: 20190418
  Serious: Yes (Life-Threatening, Hospitalization)
  Sender: FDA-Public Use
  Company Number: FR-MYLANLABS-2019M1022758

PATIENT
  Age: 88 Year
  Sex: Female
  Weight: 46 kg

DRUGS (2)
  1. DICLOFENAC [Suspect]
     Active Substance: DICLOFENAC
     Indication: ANIMAL SCRATCH
     Dosage: 150 MILLIGRAM, QD
     Route: 048
     Dates: start: 20180116, end: 20180121
  2. PYOSTACINE [Suspect]
     Active Substance: PRISTINAMYCIN
     Indication: ANIMAL SCRATCH
     Dosage: 2 GRAM, QD
     Route: 048
     Dates: start: 20180116, end: 20180121

REACTIONS (3)
  - Peritonitis [Not Recovered/Not Resolved]
  - Gastric ulcer perforation [Not Recovered/Not Resolved]
  - Septic shock [Not Recovered/Not Resolved]

NARRATIVE: CASE EVENT DATE: 20180122
